FAERS Safety Report 20177416 (Version 2)
Quarter: 2022Q1

REPORT INFORMATION
  Report Type: Report from Study
  Country: US (occurrence: US)
  Receive Date: 20211213
  Receipt Date: 20220307
  Transmission Date: 20220424
  Serious: No
  Sender: FDA-Public Use
  Company Number: US-NOVARTISTESTPH-NVSC2021US284943

PATIENT
  Sex: Female

DRUGS (1)
  1. ENTRESTO [Suspect]
     Active Substance: SACUBITRIL\VALSARTAN
     Indication: Product used for unknown indication
     Dosage: 24/26 MG, BID
     Route: 048
     Dates: start: 2018

REACTIONS (3)
  - Wrong technique in product usage process [Unknown]
  - Peripheral swelling [Recovering/Resolving]
  - Hypoaesthesia [Recovering/Resolving]
